FAERS Safety Report 8773392 (Version 1)
Quarter: 2012Q4

REPORT INFORMATION
  Report Type: 
  Country: US (occurrence: US)
  Receive Date: 20120907
  Receipt Date: 20120907
  Transmission Date: 20130627
  Serious: Yes (Other)
  Sender: FDA-Public Use
  Company Number: US-ROCHE-1117183

PATIENT
  Sex: Female

DRUGS (6)
  1. BONIVA [Suspect]
     Indication: OSTEOPOROSIS
     Route: 065
     Dates: start: 200207, end: 201106
  2. BONIVA [Suspect]
     Indication: OSTEOPENIA
  3. FOSAMAX [Suspect]
     Indication: OSTEOPOROSIS
     Route: 065
     Dates: start: 200207, end: 201106
  4. FOSAMAX [Suspect]
     Indication: OSTEOPENIA
  5. ALENDRONATE [Suspect]
     Indication: OSTEOPOROSIS
     Route: 065
     Dates: start: 200207, end: 201106
  6. ALENDRONATE [Suspect]
     Indication: OSTEOPENIA

REACTIONS (2)
  - Low turnover osteopathy [Unknown]
  - Femur fracture [Unknown]
